FAERS Safety Report 12698558 (Version 3)
Quarter: 2016Q4

REPORT INFORMATION
  Report Type: Report from Study
  Country: None (occurrence: JP)
  Receive Date: 20160830
  Receipt Date: 20161123
  Transmission Date: 20170207
  Serious: Yes (Hospitalization)
  Sender: FDA-Public Use
  Company Number: JP-ABBVIE-16P-087-1713677-00

PATIENT
  Age: 83 Year
  Sex: Female
  Weight: 39.4 kg

DRUGS (20)
  1. LEVOCETIRIZINE HYDROCHLORIDE [Concomitant]
     Active Substance: LEVOCETIRIZINE HYDROCHLORIDE
     Indication: RHINITIS ALLERGIC
     Route: 048
  2. AMBROXOL HYDROCHLORIDE [Concomitant]
     Active Substance: AMBROXOL HYDROCHLORIDE
     Indication: ASTHMA
     Route: 048
     Dates: end: 20160222
  3. SUPLATAST TOSILATE [Concomitant]
     Active Substance: SUPLATAST TOSILATE
     Indication: RHINITIS ALLERGIC
     Route: 048
     Dates: end: 20160223
  4. BECLOMETASONE DIPROPIONATE [Concomitant]
     Active Substance: BECLOMETHASONE DIPROPIONATE
     Indication: REFLUX LARYNGITIS
     Route: 048
     Dates: end: 20160317
  5. ALFACALCIDOL [Concomitant]
     Active Substance: ALFACALCIDOL
     Indication: RENAL FAILURE
     Route: 048
     Dates: end: 20160322
  6. DEXAMETHASONE PROPIONATE [Concomitant]
     Indication: PRODUCT USED FOR UNKNOWN INDICATION
     Route: 061
  7. CALCIUM POLYSTYRENE SULFONATE [Concomitant]
     Active Substance: CALCIUM POLYSTYRENE SULFONATE
     Indication: RENAL FAILURE
     Route: 048
     Dates: start: 20160211, end: 20160527
  8. GLYCYRON [Concomitant]
     Active Substance: AMMONIUM GLYCYRRHIZATE\GLYCINE\METHIONINE
     Indication: PRODUCT USED FOR UNKNOWN INDICATION
     Route: 048
     Dates: end: 20160217
  9. MOSAPRIDE CITRATE HYDRATE [Concomitant]
     Active Substance: MOSAPRIDE CITRATE DIHYDRATE
     Indication: PRODUCT USED FOR UNKNOWN INDICATION
     Route: 048
     Dates: end: 20160523
  10. FAMOTIDINE. [Concomitant]
     Active Substance: FAMOTIDINE
     Indication: PRODUCT USED FOR UNKNOWN INDICATION
     Route: 048
     Dates: start: 20160211, end: 20160421
  11. ESOMEPRAZOLE MAGNESIUM HYDRATE [Concomitant]
     Indication: REFLUX LARYNGITIS
     Route: 048
     Dates: end: 20160218
  12. URSODEOXYCHOLIC ACID [Concomitant]
     Active Substance: URSODIOL
     Indication: PRODUCT USED FOR UNKNOWN INDICATION
     Route: 048
     Dates: end: 20160221
  13. BUDESONIDE W/FORMOTEROL FUMARATE HYDRATE [Concomitant]
     Indication: ASTHMA
     Dosage: AT AN ASTHMA ATTACK
     Route: 055
     Dates: end: 20160311
  14. CALCIUM POLYSTYRENE SULFONATE-APPLE FLAVOR [Concomitant]
     Indication: RENAL FAILURE
     Route: 048
     Dates: start: 20160211, end: 20160527
  15. FLUTICASONE FUROATE [Concomitant]
     Active Substance: FLUTICASONE FUROATE
     Indication: RHINITIS ALLERGIC
     Route: 045
     Dates: end: 20160217
  16. VIEKIRAX [Suspect]
     Active Substance: OMBITASVIR\PARITAPREVIR\RITONAVIR
     Indication: HEPATITIS C
     Route: 048
     Dates: start: 20160211, end: 20160505
  17. L-CARBOCISTEINE [Concomitant]
     Active Substance: CARBOCYSTEINE
     Indication: ASTHMA
     Route: 048
     Dates: end: 20160228
  18. BECLOMETASONE DIPROPIONATE [Concomitant]
     Active Substance: BECLOMETHASONE DIPROPIONATE
     Route: 048
     Dates: start: 20160420
  19. SODIUM ALGINATE [Concomitant]
     Active Substance: SODIUM ALGINATE
     Indication: REFLUX LARYNGITIS
     Route: 048
     Dates: start: 20160418
  20. ETIZOLAM [Concomitant]
     Active Substance: ETIZOLAM
     Indication: INSOMNIA
     Dosage: ON DEVELOPMENT OF INSOMNIA
     Route: 048
     Dates: end: 20160217

REACTIONS (3)
  - Malaise [Recovering/Resolving]
  - Decreased appetite [Recovered/Resolved]
  - Renal impairment [Recovered/Resolved]

NARRATIVE: CASE EVENT DATE: 20160219
